FAERS Safety Report 5837569-6 (Version None)
Quarter: 2008Q3

REPORT INFORMATION
  Report Type: 
  Country: None (occurrence: None)
  Receive Date: 20080807
  Receipt Date: 20080726
  Transmission Date: 20090109
  Serious: Yes (Hospitalization)
  Sender: FDA-Public Use
  Company Number: DE-PFIZER INC-2008064447

PATIENT
  Sex: Female
  Weight: 62 kg

DRUGS (5)
  1. LYRICA [Suspect]
     Indication: ANXIETY DISORDER
     Dosage: DAILY DOSE:300MG
     Route: 048
  2. DIAZEPAM [Interacting]
     Indication: RESTLESSNESS
     Dosage: DAILY DOSE:20MG
     Route: 048
     Dates: start: 20070817, end: 20070819
  3. DIAZEPAM [Interacting]
     Indication: ANXIETY DISORDER
  4. SEROQUEL [Concomitant]
     Route: 048
  5. TRAZODONE HCL [Concomitant]
     Route: 048

REACTIONS (2)
  - DRUG INTERACTION [None]
  - SEDATION [None]
